FAERS Safety Report 9822146 (Version 2)
Quarter: 2014Q1

REPORT INFORMATION
  Report Type: Spontaneous
  Country: GB (occurrence: GB)
  Receive Date: 20140116
  Receipt Date: 20140324
  Transmission Date: 20141002
  Serious: Yes (Death, Other)
  Sender: FDA-Public Use
  Company Number: PHFR2014GB000699

PATIENT
  Age: 82 Year
  Sex: Female

DRUGS (4)
  1. CLOZARIL [Suspect]
     Indication: SCHIZOPHRENIA
     Dosage: 100 MG, UNK
     Route: 048
     Dates: start: 19980506
  2. CLOZARIL [Suspect]
     Indication: SCHIZOAFFECTIVE DISORDER
  3. ESCITALOPRAM [Concomitant]
     Indication: DEPRESSION
     Dosage: 10 MG, UNK
     Route: 048
  4. CO AMILOFRUSE [Concomitant]
     Dosage: UNK (2.5/20 MG)

REACTIONS (4)
  - Lower respiratory tract infection [Fatal]
  - White blood cell count increased [Unknown]
  - Haemoglobin increased [Unknown]
  - Platelet count increased [Unknown]
